FAERS Safety Report 16007411 (Version 8)
Quarter: 2019Q3

REPORT INFORMATION
  Report Type: Spontaneous
  Country: US (occurrence: US)
  Receive Date: 20190226
  Receipt Date: 20190920
  Transmission Date: 20191004
  Serious: No
  Sender: FDA-Public Use
  Company Number: US-PFIZER INC-2019083263

PATIENT
  Age: 77 Year
  Sex: Female
  Weight: 54 kg

DRUGS (3)
  1. IBRANCE [Suspect]
     Active Substance: PALBOCICLIB
     Dosage: 75 MG, DAILY
     Route: 048
     Dates: end: 2019
  2. IBRANCE [Suspect]
     Active Substance: PALBOCICLIB
     Indication: BREAST CANCER FEMALE
     Dosage: 100 MG, UNK
     Dates: start: 2017
  3. IBRANCE [Suspect]
     Active Substance: PALBOCICLIB
     Dosage: 100 MG, DAILY
     Dates: start: 2018

REACTIONS (7)
  - Weight decreased [Unknown]
  - Decreased appetite [Unknown]
  - Malaise [Unknown]
  - Neoplasm progression [Unknown]
  - Dehydration [Unknown]
  - Fatigue [Unknown]
  - Retching [Unknown]

NARRATIVE: CASE EVENT DATE: 20190626
